FAERS Safety Report 22065836 (Version 1)
Quarter: 2023Q1

REPORT INFORMATION
  Report Type: Spontaneous
  Country: US (occurrence: US)
  Receive Date: 20230306
  Receipt Date: 20230306
  Transmission Date: 20230418
  Serious: Yes (Hospitalization)
  Sender: FDA-Public Use
  Company Number: US-KI BIOPHARMA, LLC-2023KAM00004

PATIENT
  Age: 3 Year
  Sex: Female

DRUGS (2)
  1. CYTOMEGALOVIRUS IMMUNE GLOBULIN INTRAVENOUS (HUMAN) [Suspect]
     Active Substance: CYTOMEGALOVIRUS IMMUNE GLOBULIN INTRAVENOUS (HUMAN)
     Indication: Cytomegalovirus viraemia
     Dosage: UNK, 1X/WEEK
  2. GANCICLOVIR [Concomitant]
     Active Substance: GANCICLOVIR
     Dosage: 5 MG/KG, EVERY 12 HOURS

REACTIONS (1)
  - Drug ineffective for unapproved indication [Recovered/Resolved]
